FAERS Safety Report 12481913 (Version 3)
Quarter: 2016Q3

REPORT INFORMATION
  Report Type: Report from Study
  Country: US (occurrence: US)
  Receive Date: 20160620
  Receipt Date: 20160712
  Transmission Date: 20161109
  Serious: Yes (Other)
  Sender: FDA-Public Use
  Company Number: US-GILEAD-2016-0218203

PATIENT
  Age: 61 Year
  Sex: Female
  Weight: 60.77 kg

DRUGS (8)
  1. LEDIPASVIR/SOFOSBUVIR [Suspect]
     Active Substance: LEDIPASVIR\SOFOSBUVIR
     Indication: CHRONIC HEPATITIS C
     Dosage: 1 DF, QD
     Route: 048
     Dates: start: 20160514
  2. B COMPLEX                          /00322001/ [Concomitant]
  3. AMOXICILLIN. [Concomitant]
     Active Substance: AMOXICILLIN
  4. IBUPROFEN. [Concomitant]
     Active Substance: IBUPROFEN
  5. FLAGYL [Concomitant]
     Active Substance: METRONIDAZOLE\METRONIDAZOLE HYDROCHLORIDE
  6. VITAMIN C [Concomitant]
     Active Substance: ASCORBIC ACID
  7. FISH OIL [Concomitant]
     Active Substance: FISH OIL
  8. ATIVAN [Concomitant]
     Active Substance: LORAZEPAM

REACTIONS (15)
  - Disability [Unknown]
  - Confusional state [Unknown]
  - Pain [Unknown]
  - Diarrhoea [Unknown]
  - Nausea [Unknown]
  - Panic attack [Unknown]
  - Lyme disease [Unknown]
  - Photophobia [Unknown]
  - Depression [Unknown]
  - Mental impairment [Unknown]
  - Malaise [Unknown]
  - Stress [Unknown]
  - Arthralgia [Unknown]
  - Fatigue [Unknown]
  - Headache [Unknown]
